FAERS Safety Report 23856053 (Version 1)
Quarter: 2024Q2

REPORT INFORMATION
  Report Type: Spontaneous
  Country: US (occurrence: US)
  Receive Date: 20240515
  Receipt Date: 20240515
  Transmission Date: 20240716
  Serious: No
  Sender: FDA-Public Use
  Company Number: US-SA-2024SA142920

PATIENT
  Age: 53 Year
  Sex: Male

DRUGS (1)
  1. KEVZARA [Suspect]
     Active Substance: SARILUMAB
     Indication: Arteritis
     Dosage: 200 MG, QOW
     Route: 058

REACTIONS (1)
  - Product use in unapproved indication [Unknown]
